FAERS Safety Report 12957912 (Version 5)
Quarter: 2017Q1

REPORT INFORMATION
  Report Type: Report from Study
  Country: CH (occurrence: CH)
  Receive Date: 20161118
  Receipt Date: 20170117
  Transmission Date: 20170428
  Serious: Yes (Disabling, Other)
  Sender: FDA-Public Use
  Company Number: CH-GILEAD-2016-0244045

PATIENT
  Age: 47 Year
  Sex: Male
  Weight: 47 kg

DRUGS (7)
  1. NORVIR [Concomitant]
     Active Substance: RITONAVIR
     Indication: HIV INFECTION
     Dosage: 100 MG, UNK
     Route: 048
     Dates: start: 201007
  2. LYRICA [Concomitant]
     Active Substance: PREGABALIN
     Indication: BONE PAIN
     Dosage: 150 MG, UNK
     Route: 048
  3. REYATAZ [Concomitant]
     Active Substance: ATAZANAVIR SULFATE
     Indication: HIV INFECTION
     Dosage: 300 MG, UNK
     Route: 048
     Dates: start: 201007
  4. EMTRICITABINE/TENOFOVIR DISOPROXIL FUMARATE [Suspect]
     Active Substance: EMTRICITABINE\TENOFOVIR DISOPROXIL FUMARATE
     Indication: HIV INFECTION
     Dosage: 1 DF, QD
     Route: 065
     Dates: start: 201007, end: 20130627
  5. DOLOPHINE [Concomitant]
     Active Substance: METHADONE HYDROCHLORIDE
     Indication: DRUG WITHDRAWAL MAINTENANCE THERAPY
     Dosage: 30 MG, UNK
     Route: 048
  6. BACTRIM [Concomitant]
     Active Substance: SULFAMETHOXAZOLE\TRIMETHOPRIM
     Indication: CD4 LYMPHOCYTES DECREASED
     Dosage: 1 DF, UNK
     Route: 048
     Dates: start: 200306
  7. LEXONTANIL [Concomitant]
     Indication: INSOMNIA
     Dosage: 12 MG, UNK
     Route: 048
     Dates: end: 201610

REACTIONS (3)
  - Renal disorder [Not Recovered/Not Resolved]
  - Osteoporosis [Not Recovered/Not Resolved]
  - Ureterolithiasis [Not Recovered/Not Resolved]

NARRATIVE: CASE EVENT DATE: 20130306
